FAERS Safety Report 9942001 (Version 1)
Quarter: 2014Q1

REPORT INFORMATION
  Report Type: Report from Study
  Country: US (occurrence: US)
  Receive Date: 20140303
  Receipt Date: 20140303
  Transmission Date: 20141002
  Serious: No
  Sender: FDA-Public Use
  Company Number: US-ABBVIE-13P-163-1038987-00

PATIENT
  Age: 66 Year
  Sex: Female

DRUGS (8)
  1. HUMIRA [Suspect]
     Indication: RHEUMATOID ARTHRITIS
     Route: 058
     Dates: start: 200808, end: 201210
  2. HUMIRA [Suspect]
     Indication: COLITIS ULCERATIVE
     Route: 058
     Dates: start: 201211
  3. KOMBIGLYZE [Concomitant]
     Indication: TYPE 2 DIABETES MELLITUS
  4. ALTACE [Concomitant]
     Indication: HYPERTENSION
  5. AMLODIPINE [Concomitant]
     Indication: HYPERTENSION
  6. TRICOR FENOFIBRATE [Concomitant]
     Indication: BLOOD TRIGLYCERIDES
  7. DETROL LA [Concomitant]
     Indication: HYPERTONIC BLADDER
  8. ASACOL [Concomitant]
     Indication: COLITIS ULCERATIVE

REACTIONS (3)
  - Drug dose omission [Unknown]
  - Rheumatoid arthritis [Unknown]
  - Incorrect product storage [Unknown]
